FAERS Safety Report 15401926 (Version 1)
Quarter: 2018Q3

REPORT INFORMATION
  Report Type: Other
  Country: CA (occurrence: CA)
  Receive Date: 20180919
  Receipt Date: 20180919
  Transmission Date: 20181010
  Serious: Yes (Other)
  Sender: FDA-Public Use
  Company Number: CA-PFIZER INC-2018373898

PATIENT
  Age: 66 Year
  Sex: Female

DRUGS (6)
  1. APO?PREDNISONE [Suspect]
     Active Substance: PREDNISONE
     Indication: GRANULOMATOSIS WITH POLYANGIITIS
     Dosage: 10 MG, 1X/DAY
     Route: 048
  2. APO?PREDNISONE [Suspect]
     Active Substance: PREDNISONE
     Dosage: 8 MG, 1X/DAY
     Route: 048
  3. METHYLPREDNISOLONE SODIUM SUCCINATE. [Suspect]
     Active Substance: METHYLPREDNISOLONE SODIUM SUCCINATE
     Indication: GRANULOMATOSIS WITH POLYANGIITIS
     Dosage: UNK
     Route: 042
  4. APO?PREDNISONE [Suspect]
     Active Substance: PREDNISONE
     Dosage: 25 MG, 1X/DAY
     Route: 048
  5. APO?AZATHIOPRINE [Suspect]
     Active Substance: AZATHIOPRINE
     Indication: GRANULOMATOSIS WITH POLYANGIITIS
     Dosage: 25 MG, 1X/DAY
     Route: 065
  6. CYCLOPHOSPHAMIDE. [Suspect]
     Active Substance: CYCLOPHOSPHAMIDE
     Indication: GRANULOMATOSIS WITH POLYANGIITIS
     Dosage: 800 MG, UNK
     Route: 042

REACTIONS (1)
  - Kaposi^s sarcoma [Recovered/Resolved]
